FAERS Safety Report 19910841 (Version 3)
Quarter: 2022Q1

REPORT INFORMATION
  Report Type: Report from Study
  Country: US (occurrence: None)
  Receive Date: 20211004
  Receipt Date: 20220222
  Transmission Date: 20220423
  Serious: Yes (Hospitalization, Other)
  Sender: FDA-Public Use
  Company Number: US-MERCK HEALTHCARE KGAA-9267597

PATIENT
  Age: 58 Year
  Sex: Female

DRUGS (3)
  1. REBIF [Suspect]
     Active Substance: INTERFERON BETA-1A
     Indication: Multiple sclerosis
     Route: 058
     Dates: start: 20141022
  2. COVID-19 VACCINE NOS [Suspect]
     Active Substance: COVID-19 VACCINE NOS
     Indication: COVID-19 immunisation
     Dosage: FIRST DOSE ON 08 APR 2021
  3. COVID-19 VACCINE NOS [Suspect]
     Active Substance: COVID-19 VACCINE NOS
     Dosage: SECOND DOSE AUG 2021

REACTIONS (8)
  - Coeliac disease [Recovering/Resolving]
  - Multiple sclerosis relapse [Unknown]
  - Dizziness [Unknown]
  - Ageusia [Unknown]
  - Malaise [Unknown]
  - Thyroid mass [Unknown]
  - Injection site indentation [Unknown]
  - Incontinence [Unknown]

NARRATIVE: CASE EVENT DATE: 20210301
